FAERS Safety Report 5006662-2 (Version None)
Quarter: 2006Q2

REPORT INFORMATION
  Report Type: 
  Country: None (occurrence: None)
  Receive Date: 20060519
  Receipt Date: 20060304
  Transmission Date: 20061013
  Serious: Yes (Death, Hospitalization)
  Sender: FDA-Public Use
  Company Number: US-ROCHE-439156

PATIENT
  Age: 53 Year
  Sex: Female
  Weight: 93.4 kg

DRUGS (6)
  1. XELODA [Suspect]
     Route: 048
     Dates: start: 20040626, end: 20040626
  2. DOXIL [Suspect]
     Route: 042
     Dates: start: 20040625
  3. ZOLEDRONIC ACID [Concomitant]
  4. PACLITAXEL [Concomitant]
  5. DOCETAXEL [Concomitant]
  6. EXEMESTANE [Concomitant]

REACTIONS (14)
  - ALANINE AMINOTRANSFERASE INCREASED [None]
  - ASPARTATE AMINOTRANSFERASE INCREASED [None]
  - BLOOD ALKALINE PHOSPHATASE INCREASED [None]
  - BLOOD BILIRUBIN INCREASED [None]
  - BREAST CANCER METASTATIC [None]
  - DYSPNOEA [None]
  - HEPATORENAL FAILURE [None]
  - HYPERSENSITIVITY [None]
  - INADEQUATE ANALGESIA [None]
  - LIVER FUNCTION TEST ABNORMAL [None]
  - METASTASES TO LIVER [None]
  - NEPHRITIS INTERSTITIAL [None]
  - RENAL FAILURE ACUTE [None]
  - SINUS TACHYCARDIA [None]
